FAERS Safety Report 11004029 (Version 1)
Quarter: 2015Q2

REPORT INFORMATION
  Report Type: Spontaneous
  Country: US (occurrence: US)
  Receive Date: 20150409
  Receipt Date: 20150409
  Transmission Date: 20150821
  Serious: Yes (Death)
  Sender: FDA-Public Use
  Company Number: US-ROCHE-1561934

PATIENT
  Age: 86 Year
  Sex: Female

DRUGS (1)
  1. GAZYVA [Suspect]
     Active Substance: OBINUTUZUMAB
     Indication: CHRONIC LYMPHOCYTIC LEUKAEMIA
     Route: 065
     Dates: start: 20141201

REACTIONS (5)
  - Hypersensitivity vasculitis [Unknown]
  - Cardiac failure congestive [Fatal]
  - Sepsis [Fatal]
  - Thrombocytopenia [Unknown]
  - Neutropenia [Unknown]
